FAERS Safety Report 5280607-2 (Version None)
Quarter: 2007Q1

REPORT INFORMATION
  Report Type: 
  Country: None (occurrence: None)
  Receive Date: 20070329
  Receipt Date: 20070323
  Transmission Date: 20070707
  Serious: Yes (Other)
  Sender: FDA-Public Use
  Company Number: 2007UW02615

PATIENT
  Age: 52 Year
  Sex: Female
  Weight: 63.2 kg

DRUGS (2)
  1. ARIMIDEX [Suspect]
     Indication: BREAST CANCER FEMALE
     Route: 048
     Dates: start: 20060101
  2. HERBAL MEDICINE [Concomitant]

REACTIONS (1)
  - VISION BLURRED [None]
